FAERS Safety Report 7565917-8 (Version None)
Quarter: 2011Q2

REPORT INFORMATION
  Report Type: 
  Country: None (occurrence: None)
  Receive Date: 20110623
  Receipt Date: 20110621
  Transmission Date: 20111010
  Serious: No
  Sender: FDA-Public Use
  Company Number: US-PFIZER INC-2010149491

PATIENT
  Sex: Male
  Weight: 72.562 kg

DRUGS (2)
  1. ADVIL PM [Suspect]
     Indication: SLEEP DISORDER
     Dosage: 1 DF, 2X/DAY
     Route: 048
     Dates: start: 20101101
  2. ADVIL PM [Suspect]
     Dosage: UNK
     Route: 048
     Dates: start: 20110617, end: 20110619

REACTIONS (1)
  - DRUG INEFFECTIVE [None]
